FAERS Safety Report 7902111-2 (Version None)
Quarter: 2011Q4

REPORT INFORMATION
  Report Type: 
  Country: None (occurrence: None)
  Receive Date: 20111108
  Receipt Date: 20111031
  Transmission Date: 20120403
  Serious: Yes (Other)
  Sender: FDA-Public Use
  Company Number: US-ASTRAZENECA-2011SE52958

PATIENT
  Age: 55 Year
  Sex: Male
  Weight: 101.6 kg

DRUGS (2)
  1. CRESTOR [Suspect]
     Indication: HYPERLIPIDAEMIA
     Route: 048
     Dates: start: 20110824, end: 20110830
  2. DOMAZOSIN [Suspect]
     Indication: HYPERTENSION
     Dosage: 1-2 MG DAILY
     Route: 065

REACTIONS (3)
  - MYALGIA [None]
  - FATIGUE [None]
  - OEDEMA PERIPHERAL [None]
